FAERS Safety Report 4393665-4 (Version None)
Quarter: 2004Q3

REPORT INFORMATION
  Report Type: 
  Country: None (occurrence: None)
  Receive Date: 20040709
  Receipt Date: 20030407
  Transmission Date: 20050211
  Serious: Yes (Hospitalization, Disabling, Other)
  Sender: FDA-Public Use
  Company Number: US-MERCK-0304USA00748

PATIENT
  Age: 65 Year
  Sex: Male
  Weight: 105 kg

DRUGS (4)
  1. ASPIRIN [Concomitant]
     Route: 065
     Dates: start: 20020405, end: 20040201
  2. NEURONTIN [Concomitant]
     Route: 065
  3. VIOXX [Suspect]
     Indication: SPINAL OSTEOARTHRITIS
     Route: 048
     Dates: start: 19990101
  4. WARFARIN [Concomitant]
     Route: 065
     Dates: start: 20020205, end: 20020511

REACTIONS (17)
  - ABDOMINAL PAIN UPPER [None]
  - ACTIVATED PARTIAL THROMBOPLASTIN TIME PROLONGED [None]
  - ANXIETY [None]
  - ARTERIAL DISORDER [None]
  - CARDIAC ANEURYSM [None]
  - CEREBRAL INFARCTION [None]
  - CHEST PAIN [None]
  - CONGENITAL ATRIAL SEPTAL DEFECT [None]
  - DIVERTICULUM [None]
  - DYSPNOEA [None]
  - EMOTIONAL DISTRESS [None]
  - HAEMORRHOIDS [None]
  - INTRACRANIAL ANEURYSM [None]
  - LACUNAR INFARCTION [None]
  - MYOCARDIAL INFARCTION [None]
  - PAIN [None]
  - SPINAL OSTEOARTHRITIS [None]
